FAERS Safety Report 9022429 (Version 3)
Quarter: 2013Q1

REPORT INFORMATION
  Report Type: Spontaneous
  Country: ES (occurrence: ES)
  Receive Date: 20130118
  Receipt Date: 20130307
  Transmission Date: 20140127
  Serious: Yes (Hospitalization)
  Sender: FDA-Public Use
  Company Number: ES-CELGENEUS-144-50794-13011834

PATIENT
  Age: 75 Year
  Sex: Female

DRUGS (4)
  1. VIDAZA [Suspect]
     Indication: SIDEROBLASTIC ANAEMIA
     Dosage: 115 MILLIGRAM
     Route: 058
     Dates: start: 20121210, end: 20121218
  2. EUTIROX [Concomitant]
     Indication: HYPOTHYROIDISM
     Dosage: 100 MICROGRAM
     Route: 048
     Dates: start: 2000
  3. ENALAPRIL [Concomitant]
     Indication: HYPERTENSION
     Dosage: 20 MICROGRAM
     Route: 065
     Dates: start: 2001
  4. DEFERASIROX [Concomitant]
     Indication: IRON OVERLOAD
     Dosage: 20 MICROGRAM
     Route: 065
     Dates: start: 2001

REACTIONS (1)
  - Colitis ischaemic [Recovered/Resolved with Sequelae]
